FAERS Safety Report 13195616 (Version 1)
Quarter: 2017Q1

REPORT INFORMATION
  Report Type: Report from Study
  Country: US (occurrence: US)
  Receive Date: 20170208
  Receipt Date: 20170208
  Transmission Date: 20170428
  Serious: No
  Sender: FDA-Public Use
  Company Number: US-009507513-1701USA010311

PATIENT

DRUGS (1)
  1. RALTEGRAVIR POTASSIUM [Suspect]
     Active Substance: RALTEGRAVIR POTASSIUM
     Indication: HIV INFECTION

REACTIONS (3)
  - Drug resistance [Unknown]
  - Drug dose omission [Unknown]
  - Treatment noncompliance [Unknown]
